FAERS Safety Report 4325176-6 (Version None)
Quarter: 2004Q1

REPORT INFORMATION
  Report Type: 
  Country: None (occurrence: None)
  Receive Date: 20040326
  Receipt Date: 20030411
  Transmission Date: 20041129
  Serious: Yes (Other)
  Sender: FDA-Public Use
  Company Number: US-MERCK-0304USA01363

PATIENT
  Age: 47 Year
  Sex: Female
  Weight: 76 kg

DRUGS (29)
  1. PANLOR SS [Concomitant]
     Indication: PAIN
  2. ZOVIRAX [Concomitant]
     Route: 048
  3. TESSALON [Concomitant]
  4. DOCUSATE SODIUM [Concomitant]
     Route: 048
  5. ERYTHROMYCIN [Concomitant]
     Route: 061
  6. ETHINYL ESTRADIOL AND NORGESTIMATE [Concomitant]
  7. GLUCOSAMINE [Concomitant]
  8. HUMIBID [Concomitant]
  9. HYDROQUINONE [Concomitant]
     Route: 061
  10. KETOCONAZOLE [Concomitant]
     Route: 061
  11. LANSOPRAZOLE [Concomitant]
     Route: 048
  12. SYNTHROID [Concomitant]
     Route: 048
  13. CLARITIN-D [Concomitant]
     Route: 048
  14. NASONEX [Concomitant]
  15. PRILOSEC [Concomitant]
     Indication: GASTROOESOPHAGEAL REFLUX DISEASE
  16. PRILOSEC [Concomitant]
  17. OXYBUTYNIN CHLORIDE [Concomitant]
  18. PAXIL [Concomitant]
     Route: 048
     Dates: start: 20000101, end: 20000701
  19. VIOXX [Suspect]
     Indication: OSTEOARTHRITIS
     Route: 048
     Dates: start: 20000407, end: 20011201
  20. VIOXX [Suspect]
     Route: 048
     Dates: start: 20020101, end: 20020101
  21. VIOXX [Suspect]
     Indication: FIBROMYALGIA
     Route: 048
     Dates: start: 20000407, end: 20011201
  22. VIOXX [Suspect]
     Route: 048
     Dates: start: 20020101, end: 20020101
  23. ULTRAM [Concomitant]
     Indication: PAIN
     Dates: start: 20010101, end: 20020101
  24. TRETINOIN [Concomitant]
     Route: 061
  25. TRIAMCINOLONE [Concomitant]
     Route: 061
  26. UREA [Concomitant]
     Route: 061
  27. EFFEXOR XR [Concomitant]
     Dates: start: 20000701
  28. SONATA [Concomitant]
     Indication: SLEEP DISORDER
     Dates: start: 20000101, end: 20000727
  29. AMBIEN [Concomitant]
     Indication: SLEEP DISORDER
     Dates: start: 20000101, end: 20000727

REACTIONS (29)
  - ANXIETY [None]
  - CHEST PAIN [None]
  - CYST [None]
  - DEPRESSION [None]
  - DIABETES MELLITUS [None]
  - DIZZINESS [None]
  - DRY MOUTH [None]
  - EAR PRURITUS [None]
  - EMOTIONAL DISTRESS [None]
  - FOOD INTOLERANCE [None]
  - FUNGAL INFECTION [None]
  - GASTROOESOPHAGEAL REFLUX DISEASE [None]
  - INCREASED TENDENCY TO BRUISE [None]
  - INJURY [None]
  - IRRITABLE BOWEL SYNDROME [None]
  - KERATOCONJUNCTIVITIS SICCA [None]
  - MAJOR DEPRESSION [None]
  - MITRAL VALVE INCOMPETENCE [None]
  - MYOCARDIAL INFARCTION [None]
  - NASAL DISORDER [None]
  - NIGHT CRAMPS [None]
  - OVARIAN CYST [None]
  - PARAESTHESIA [None]
  - POST-TRAUMATIC STRESS DISORDER [None]
  - SCAR [None]
  - SLEEP DISORDER [None]
  - STRESS SYMPTOMS [None]
  - TRICUSPID VALVE INCOMPETENCE [None]
  - URINARY TRACT INFECTION [None]
